FAERS Safety Report 8226408-4 (Version None)
Quarter: 2012Q1

REPORT INFORMATION
  Report Type: 
  Country: None (occurrence: None)
  Receive Date: 20120321
  Receipt Date: 20120312
  Transmission Date: 20120608
  Serious: Yes (Hospitalization, Other)
  Sender: FDA-Public Use
  Company Number: BR-ASTRAZENECA-2011SE67384

PATIENT
  Age: 82 Year
  Sex: Female

DRUGS (4)
  1. SYMBICORT [Suspect]
     Dosage: 160/4.5 MCG UNKNOWN FREQUENCY
     Route: 055
  2. ASPIRIN [Concomitant]
     Route: 048
  3. SYMBICORT [Suspect]
     Indication: ASTHMA
     Dosage: 320/9 MCG UNKNOWN FREQUENCY
     Route: 055
     Dates: end: 20111103
  4. DIGOBAL [Concomitant]

REACTIONS (1)
  - CEREBROVASCULAR ACCIDENT [None]
